FAERS Safety Report 8231502-8 (Version None)
Quarter: 2012Q1

REPORT INFORMATION
  Report Type: 
  Country: None (occurrence: None)
  Receive Date: 20120323
  Receipt Date: 20120315
  Transmission Date: 20120608
  Serious: Yes (Hospitalization, Other)
  Sender: FDA-Public Use
  Company Number: PHFR2012GB000487

PATIENT
  Sex: Male

DRUGS (2)
  1. CLOZARIL [Suspect]
     Indication: SCHIZOPHRENIA
     Dosage: UNK UKN, UNK
     Route: 048
     Dates: start: 19921123, end: 20111229
  2. CLOZARIL [Suspect]
     Dosage: 200 MG, DAILY
     Route: 048

REACTIONS (5)
  - GASTRIC CANCER [None]
  - GASTROINTESTINAL CARCINOMA [None]
  - OESOPHAGEAL CARCINOMA [None]
  - DYSPHAGIA [None]
  - PLATELET COUNT INCREASED [None]
